FAERS Safety Report 16278039 (Version 2)
Quarter: 2019Q2

REPORT INFORMATION
  Report Type: Spontaneous
  Country: US (occurrence: US)
  Receive Date: 20190506
  Receipt Date: 20190613
  Transmission Date: 20190711
  Serious: No
  Sender: FDA-Public Use
  Company Number: US-LUNDBECK-DKLU2072413

PATIENT
  Age: 77 Year
  Sex: Male

DRUGS (4)
  1. NORTHERA [Suspect]
     Active Substance: DROXIDOPA
     Route: 048
  2. NORTHERA [Suspect]
     Active Substance: DROXIDOPA
     Dosage: IN THE AM: TAKE 100 MG PLUS 300 MG TO EQUAL 400 MG.
     Route: 048
     Dates: start: 20181015
  3. NORTHERA [Suspect]
     Active Substance: DROXIDOPA
     Indication: PARKINSON^S DISEASE
     Route: 048
     Dates: start: 20180315
  4. NORTHERA [Suspect]
     Active Substance: DROXIDOPA
     Dosage: IN THE AM: TAKE 300 MG PLUS 100 MG TO EQUAL 400 MG.
     Route: 048
     Dates: start: 20181015

REACTIONS (2)
  - Orthostatic hypotension [Unknown]
  - Dizziness [Not Recovered/Not Resolved]

NARRATIVE: CASE EVENT DATE: 20180315
